FAERS Safety Report 7902491-8 (Version None)
Quarter: 2011Q4

REPORT INFORMATION
  Report Type: 
  Country: None (occurrence: None)
  Receive Date: 20111108
  Receipt Date: 20100625
  Transmission Date: 20120403
  Serious: No
  Sender: FDA-Public Use
  Company Number: US-BAYER-201027717NA

PATIENT
  Age: 48 Year
  Sex: Female

DRUGS (1)
  1. CLIMARA [Suspect]
     Dosage: 0.05 MG/D, UNK
     Dates: start: 20090101

REACTIONS (4)
  - FATIGUE [None]
  - DYSPNOEA [None]
  - DIZZINESS [None]
  - WEIGHT INCREASED [None]
